FAERS Safety Report 10149355 (Version 4)
Quarter: 2014Q4

REPORT INFORMATION
  Report Type: Report from Study
  Country: CA (occurrence: CA)
  Receive Date: 20140502
  Receipt Date: 20141028
  Transmission Date: 20150528
  Serious: Yes (Hospitalization, Other)
  Sender: FDA-Public Use
  Company Number: CA-TEVA-478582USA

PATIENT
  Age: 72 Year
  Sex: Female
  Weight: 107.5 kg

DRUGS (43)
  1. RITUXAN [Suspect]
     Active Substance: RITUXIMAB
     Indication: B-CELL LYMPHOMA
     Dosage: 27.8571 MILLIGRAM DAILY;
     Route: 042
     Dates: start: 20140130, end: 20140227
  2. OMEPRAZOLE. [Concomitant]
     Active Substance: OMEPRAZOLE
  3. NAPROSYN [Concomitant]
     Active Substance: NAPROXEN
  4. TYLENOL [Concomitant]
     Active Substance: ACETAMINOPHEN
  5. RIVA-VENLAFAXINE [Concomitant]
  6. ACETAMINOPHEN. [Concomitant]
     Active Substance: ACETAMINOPHEN
  7. AVELOX [Concomitant]
     Active Substance: MOXIFLOXACIN HYDROCHLORIDE
  8. QUININE [Concomitant]
     Active Substance: QUININE
  9. MAGLUCATE [Concomitant]
  10. CIPRO [Concomitant]
     Active Substance: CIPROFLOXACIN HYDROCHLORIDE
  11. FER [Concomitant]
  12. MACROGOL [Concomitant]
     Active Substance: POLYETHYLENE GLYCOLS
  13. GS-1101 (IDELALISIB) [Suspect]
     Active Substance: IDELALISIB
     Indication: B-CELL LYMPHOMA
     Dosage: 150 MILLIGRAM DAILY;
     Route: 048
     Dates: start: 20140130, end: 20140313
  14. BENADRYL [Concomitant]
     Active Substance: DIPHENHYDRAMINE HYDROCHLORIDE
  15. SOLU-CORTEF [Concomitant]
     Active Substance: HYDROCORTISONE SODIUM SUCCINATE
  16. CLONAZEPAM. [Concomitant]
     Active Substance: CLONAZEPAM
  17. SYNTHROID [Concomitant]
     Active Substance: LEVOTHYROXINE SODIUM
  18. STEMETIL [Concomitant]
     Active Substance: PROCHLORPERAZINE MALEATE
     Dates: start: 20140130
  19. ELMIRON [Concomitant]
     Active Substance: PENTOSAN POLYSULFATE SODIUM
  20. COLECALCIFEROL [Concomitant]
     Active Substance: CHOLECALCIFEROL
  21. GRAVOL [Concomitant]
     Active Substance: DIMENHYDRINATE
  22. BENDAMUSTINE [Suspect]
     Active Substance: BENDAMUSTINE
     Indication: B-CELL LYMPHOMA
     Dosage: 6.6786 MILLIGRAM DAILY;
     Route: 042
     Dates: start: 20140130, end: 20140226
  23. MORPHINE [Concomitant]
     Active Substance: MORPHINE
  24. HEPARIN [Concomitant]
     Active Substance: HEPARIN SODIUM
  25. PANTOLOC [Concomitant]
     Active Substance: PANTOPRAZOLE SODIUM
  26. MAALOX ANTACID [Concomitant]
     Active Substance: ALUMINUM HYDROXIDE\DIMETHICONE\MAGNESIUM HYDROXIDE
  27. FRAGMIN [Concomitant]
     Active Substance: DALTEPARIN SODIUM
  28. ATIVAN [Concomitant]
     Active Substance: LORAZEPAM
  29. VITAMIN D [Concomitant]
     Active Substance: CHOLECALCIFEROL
  30. TELMISARTAN. [Concomitant]
     Active Substance: TELMISARTAN
  31. CALCIUM [Concomitant]
     Active Substance: CALCIUM
  32. SENOKOT [Concomitant]
     Active Substance: SENNOSIDES
  33. CELESTODERM [Concomitant]
     Active Substance: BETAMETHASONE VALERATE
  34. ZOFRAN [Concomitant]
     Active Substance: ONDANSETRON HYDROCHLORIDE
  35. K-DUR [Concomitant]
     Active Substance: POTASSIUM CHLORIDE
  36. MONOCOR [Concomitant]
     Active Substance: BISOPROLOL FUMARATE
  37. MAXERAN [Concomitant]
     Active Substance: METOCLOPRAMIDE HYDROCHLORIDE
  38. NIFEDIPINE. [Concomitant]
     Active Substance: NIFEDIPINE
  39. ROSUVASTATIN [Concomitant]
     Active Substance: ROSUVASTATIN
  40. VENTOLIN [Concomitant]
     Active Substance: ALBUTEROL SULFATE
  41. NEUPOGEN [Concomitant]
     Active Substance: FILGRASTIM
  42. PULMICORT TURBUHALER [Concomitant]
     Active Substance: BUDESONIDE
  43. FLEET NOS [Concomitant]
     Active Substance: BISACODYL OR GLYCERIN OR MINERAL OIL OR SODIUM PHOSPHATE, DIBASIC\SODIUM PHOSPHATE, MONOBASIC

REACTIONS (7)
  - Cholecystitis acute [Recovered/Resolved]
  - Aspartate aminotransferase increased [Recovered/Resolved]
  - Alanine aminotransferase increased [Recovered/Resolved]
  - Cholelithiasis [Not Recovered/Not Resolved]
  - Neutropenia [Recovered/Resolved]
  - Pyrexia [Recovered/Resolved]
  - Off label use [Recovered/Resolved]

NARRATIVE: CASE EVENT DATE: 20140130
